FAERS Safety Report 5243772-9 (Version None)
Quarter: 2007Q1

REPORT INFORMATION
  Report Type: 
  Country: None (occurrence: None)
  Receive Date: 20070222
  Receipt Date: 20070208
  Transmission Date: 20070707
  Serious: Yes (Other)
  Sender: FDA-Public Use
  Company Number: PHFR2007GB00782

PATIENT
  Sex: Female

DRUGS (1)
  1. TERBINAFINE HCL [Suspect]
     Indication: NAIL TINEA
     Dosage: 250MG DAILY
     Route: 048
     Dates: start: 20060620

REACTIONS (2)
  - GINGIVAL PAIN [None]
  - PARAESTHESIA ORAL [None]
